FAERS Safety Report 6836132-8 (Version None)
Quarter: 2010Q3

REPORT INFORMATION
  Report Type: 
  Country: None (occurrence: None)
  Receive Date: 20100712
  Receipt Date: 20100712
  Transmission Date: 20110219
  Serious: Yes (Hospitalization)
  Sender: FDA-Public Use
  Company Number: None

PATIENT
  Age: 60 Year
  Sex: Female
  Weight: 69.8539 kg

DRUGS (2)
  1. IXABEPILONE 15MG - BRISTOL MYERS SQUIBB [Suspect]
     Indication: ADENOID CYSTIC CARCINOMA
     Dosage: 40MG/M2 IV Q3WK
     Route: 042
     Dates: start: 20100409
  2. DASATINIB 50MG - BRISTOL MYERS SQUIBB [Suspect]
     Dosage: 100MG PO DAILY
     Route: 048
     Dates: start: 20100409

REACTIONS (3)
  - ATRIAL FIBRILLATION [None]
  - CHEST DISCOMFORT [None]
  - FATIGUE [None]
